FAERS Safety Report 17528892 (Version 1)
Quarter: 2020Q1

REPORT INFORMATION
  Report Type: Spontaneous
  Country: US (occurrence: US)
  Receive Date: 20200311
  Receipt Date: 20200311
  Transmission Date: 20200409
  Serious: Yes (Other)
  Sender: FDA-Public Use
  Company Number: US-FLEXION THERAPEUTICS, INC.-2020FLS000032

PATIENT
  Age: 67 Year
  Sex: Male

DRUGS (8)
  1. ZILRETTA [Suspect]
     Active Substance: TRIAMCINOLONE ACETONIDE
     Indication: PRODUCT USED FOR UNKNOWN INDICATION
     Dosage: BILATERAL KNEE INJECTIONS
     Route: 014
     Dates: start: 201910, end: 201910
  2. ZILRETTA [Suspect]
     Active Substance: TRIAMCINOLONE ACETONIDE
     Dosage: BILATERAL KNEE INJECTIONS
     Route: 014
     Dates: start: 201903, end: 201903
  3. HYALURONIC ACID [Concomitant]
     Active Substance: HYALURONIC ACID
     Indication: PRODUCT USED FOR UNKNOWN INDICATION
  4. LANTUS [Concomitant]
     Active Substance: INSULIN GLARGINE
     Indication: TYPE 2 DIABETES MELLITUS
  5. HUMULIN INSULIN 70/30 [Concomitant]
     Indication: TYPE 2 DIABETES MELLITUS
  6. JARDIANCE [Concomitant]
     Active Substance: EMPAGLIFLOZIN
     Indication: TYPE 2 DIABETES MELLITUS
     Route: 048
  7. ZILRETTA [Suspect]
     Active Substance: TRIAMCINOLONE ACETONIDE
     Dosage: BILATERAL KNEE INJECTIONS
     Route: 014
     Dates: start: 201906, end: 201906
  8. AMLODIPINE [Concomitant]
     Active Substance: AMLODIPINE BESYLATE
     Indication: HYPERTENSION

REACTIONS (1)
  - Eye haemorrhage [Recovered/Resolved]

NARRATIVE: CASE EVENT DATE: 20200204
